FAERS Safety Report 8619728-2 (Version None)
Quarter: 2012Q3

REPORT INFORMATION
  Report Type: 
  Country: None (occurrence: None)
  Receive Date: 20120824
  Receipt Date: 20120821
  Transmission Date: 20120928
  Serious: Yes (Life-Threatening, Hospitalization)
  Sender: FDA-Public Use
  Company Number: JP-B.I. PHARMACEUTICALS,INC./RIDGEFIELD-2012-BP-20343NB

PATIENT
  Age: 78 Year
  Sex: Male
  Weight: 54.5 kg

DRUGS (3)
  1. PRADAXA [Suspect]
     Indication: ATRIAL FIBRILLATION
     Dosage: 220 MG
     Route: 048
     Dates: start: 20120721, end: 20120811
  2. PHENYTOIN SODIUM CAP [Concomitant]
     Route: 048
  3. RABEPRAZOLE SODIUM [Concomitant]
     Route: 048

REACTIONS (1)
  - INTRACARDIAC THROMBUS [None]
